FAERS Safety Report 15590258 (Version 4)
Quarter: 2019Q1

REPORT INFORMATION
  Report Type: Report from Study
  Country: US (occurrence: US)
  Receive Date: 20181106
  Receipt Date: 20190211
  Transmission Date: 20190417
  Serious: No
  Sender: FDA-Public Use
  Company Number: PHEH2018US046197

PATIENT
  Sex: Female
  Weight: 99.79 kg

DRUGS (4)
  1. PHENTERMINE. [Concomitant]
     Active Substance: PHENTERMINE
     Indication: WEIGHT DECREASED
     Dosage: 30 MG, QD
     Route: 065
  2. PRENATAL VITAMINS [Concomitant]
     Active Substance: VITAMINS
     Indication: PREGNANCY
     Dosage: UNK UNK, QD
     Route: 048
     Dates: start: 201809
  3. GILENYA [Suspect]
     Active Substance: FINGOLIMOD HYDROCHLORIDE
     Dosage: 0.5 MG, QD
     Route: 048
     Dates: start: 201806, end: 20180907
  4. GILENYA [Suspect]
     Active Substance: FINGOLIMOD HYDROCHLORIDE
     Indication: RELAPSING-REMITTING MULTIPLE SCLEROSIS
     Dosage: 0.5 UNK, UNK
     Route: 065
     Dates: start: 201804

REACTIONS (1)
  - Maternal exposure during pregnancy [Unknown]
